FAERS Safety Report 8849230 (Version 1)
Quarter: 2012Q4

REPORT INFORMATION
  Report Type: Report from Study
  Country: CA (occurrence: CA)
  Receive Date: 20121019
  Receipt Date: 20121019
  Transmission Date: 20130627
  Serious: Yes (Other)
  Sender: FDA-Public Use
  Company Number: CA-JNJFOC-20121005925

PATIENT
  Age: 51 Year
  Sex: Male
  Weight: 75 kg

DRUGS (7)
  1. REMICADE [Suspect]
     Indication: COLITIS ULCERATIVE
     Route: 042
     Dates: start: 20121009, end: 20121009
  2. ASA [Concomitant]
     Route: 048
  3. COVERSYL [Concomitant]
     Route: 048
  4. IMURAN [Concomitant]
     Dosage: for 3 days
     Route: 065
     Dates: end: 20120924
  5. PREDNISONE [Concomitant]
     Dosage: for 3 days
     Route: 065
     Dates: end: 20120924
  6. LIPITOR [Concomitant]
     Route: 065
  7. METFORMIN [Concomitant]
     Route: 048

REACTIONS (4)
  - Blood glucose decreased [Recovered/Resolved]
  - Infusion related reaction [Recovered/Resolved]
  - Dizziness [Recovered/Resolved]
  - Feeling hot [Recovered/Resolved]
